FAERS Safety Report 10230899 (Version 2)
Quarter: 2014Q2

REPORT INFORMATION
  Report Type: Spontaneous
  Country: US (occurrence: US)
  Receive Date: 20140611
  Receipt Date: 20140623
  Transmission Date: 20141212
  Serious: Yes (Hospitalization)
  Sender: FDA-Public Use
  Company Number: US-ACTELION-A-NJ2014-099927

PATIENT
  Age: 61 Year
  Sex: Male

DRUGS (4)
  1. OPSUMIT [Suspect]
     Indication: PULMONARY ARTERIAL HYPERTENSION
     Dosage: 10 MG, QD
     Route: 048
     Dates: start: 20140521
  2. VELETRI [Suspect]
     Indication: PULMONARY ARTERIAL HYPERTENSION
     Dosage: 18 NG/KG, PER MIN
     Route: 042
     Dates: start: 201311
  3. REVATIO [Concomitant]
  4. LISINOPRIL [Concomitant]

REACTIONS (9)
  - Renal failure acute [Recovering/Resolving]
  - Insomnia [Unknown]
  - Chills [Unknown]
  - Hypotension [Recovering/Resolving]
  - Right ventricular failure [Recovering/Resolving]
  - Condition aggravated [Recovering/Resolving]
  - Fluid overload [Recovering/Resolving]
  - Blood culture negative [Recovering/Resolving]
  - Urine analysis normal [Recovering/Resolving]
